FAERS Safety Report 5163667-9 (Version None)
Quarter: 2006Q4

REPORT INFORMATION
  Report Type: 
  Country: None (occurrence: None)
  Receive Date: 20061204
  Receipt Date: 20061108
  Transmission Date: 20070319
  Serious: Yes (Hospitalization)
  Sender: FDA-Public Use
  Company Number: US-GLAXOSMITHKLINE-A0626726A

PATIENT
  Age: 59 Year
  Sex: Female

DRUGS (5)
  1. WELLBUTRIN [Suspect]
     Indication: DEPRESSION
     Dosage: 300MG PER DAY
     Route: 048
  2. PAXIL [Suspect]
     Indication: DEPRESSION
     Route: 065
  3. PAXIL [Suspect]
     Dosage: 25U UNKNOWN
     Route: 065
  4. CRESTOR [Concomitant]
  5. HYDROCHLOROTHIAZIDE [Concomitant]

REACTIONS (8)
  - ANOREXIA [None]
  - DRUG INEFFECTIVE [None]
  - DYSARTHRIA [None]
  - IMPAIRED GASTRIC EMPTYING [None]
  - TREMOR [None]
  - VIRAL INFECTION [None]
  - WEIGHT DECREASED [None]
  - WEIGHT INCREASED [None]
